FAERS Safety Report 16336844 (Version 1)
Quarter: 2019Q2

REPORT INFORMATION
  Report Type: Spontaneous
  Country: BR (occurrence: BR)
  Receive Date: 20190521
  Receipt Date: 20190521
  Transmission Date: 20190711
  Serious: Yes (Other)
  Sender: FDA-Public Use
  Company Number: BR-SA-2019SA136732

PATIENT
  Age: 67 Year
  Sex: Male
  Weight: 84.2 kg

DRUGS (3)
  1. CEPACOL [Suspect]
     Active Substance: BENZOCAINE
     Indication: DENTAL DISORDER PROPHYLAXIS
     Dosage: UNK
     Route: 048
  2. ENTECAVIR. [Concomitant]
     Active Substance: ENTECAVIR
     Indication: HEPATITIS
     Dosage: UNK
  3. INTERFERON [INTERFERON ALFA-2B] [Suspect]
     Active Substance: INTERFERON ALFA-2B
     Indication: HEPATIC CANCER
     Dosage: ROUTE: INJECTABLE

REACTIONS (5)
  - Hepatic cancer [Unknown]
  - Condition aggravated [Unknown]
  - Unevaluable event [Unknown]
  - Liver injury [Unknown]
  - Liver disorder [Unknown]

NARRATIVE: CASE EVENT DATE: 2018
